FAERS Safety Report 5175716-2 (Version None)
Quarter: 2006Q4

REPORT INFORMATION
  Report Type: 
  Country: None (occurrence: None)
  Receive Date: 20061215
  Receipt Date: 20061128
  Transmission Date: 20070319
  Serious: Yes (Other)
  Sender: FDA-Public Use
  Company Number: 2006SE06426

PATIENT
  Age: 29 Year
  Sex: Female
  Weight: 52 kg

DRUGS (3)
  1. NEXIUM [Suspect]
     Indication: GASTRITIS PROPHYLAXIS
     Route: 048
     Dates: start: 20061014, end: 20061118
  2. IBUTIN TABS (TRIMEBUTINE) [Concomitant]
     Route: 048
     Dates: start: 20060801
  3. SALOFALK TABS (MESALAZINE) [Concomitant]
     Indication: COLITIS
     Route: 048
     Dates: start: 20061014

REACTIONS (1)
  - BLOOD CHROMOGRANIN A INCREASED [None]
